FAERS Safety Report 13130851 (Version 1)
Quarter: 2017Q1

REPORT INFORMATION
  Report Type: Spontaneous
  Country: US (occurrence: US)
  Receive Date: 20170118
  Receipt Date: 20170118
  Transmission Date: 20170428
  Serious: No
  Sender: FDA-Public Use
  Company Number: None

PATIENT
  Age: 25 Year
  Sex: Female

DRUGS (1)
  1. HUMIRA [Suspect]
     Active Substance: ADALIMUMAB
     Indication: COLITIS ULCERATIVE
     Dosage: 160MG DAY, 1,80MG DAY 15  AS DIRECTED FOR START DOSE
     Route: 058
     Dates: start: 20170104

REACTIONS (4)
  - Cough [None]
  - Chest pain [None]
  - Dyspnoea [None]
  - Upper respiratory tract infection [None]

NARRATIVE: CASE EVENT DATE: 20170110
